FAERS Safety Report 7010218-X (Version None)
Quarter: 2010Q3

REPORT INFORMATION
  Report Type: 
  Country: None (occurrence: None)
  Receive Date: 20100923
  Receipt Date: 20100908
  Transmission Date: 20110219
  Serious: Yes (Death)
  Sender: FDA-Public Use
  Company Number: GXKR2010GB10533

PATIENT
  Sex: Female

DRUGS (1)
  1. CLOZAPINE [Suspect]
     Route: 065

REACTIONS (1)
  - DRUG TOXICITY [None]
